FAERS Safety Report 6145040-X (Version None)
Quarter: 2009Q2

REPORT INFORMATION
  Report Type: 
  Country: None (occurrence: None)
  Receive Date: 20090406
  Receipt Date: 20090325
  Transmission Date: 20091009
  Serious: Yes (Other)
  Sender: FDA-Public Use
  Company Number: CN-PFIZER INC-2009189582

PATIENT

DRUGS (3)
  1. GLUCOTROL [Suspect]
     Indication: DIABETES MELLITUS
     Dosage: 5 MG, 1X/DAY
     Route: 048
     Dates: start: 20090321
  2. GLUCOBAY [Concomitant]
     Route: 048
  3. SALVIA MILTIORRHIZA [Concomitant]
     Route: 048

REACTIONS (3)
  - BLOOD GLUCOSE INCREASED [None]
  - HYPOAESTHESIA FACIAL [None]
  - PARAESTHESIA [None]
